FAERS Safety Report 14918397 (Version 2)
Quarter: 2018Q2

REPORT INFORMATION
  Report Type: Spontaneous
  Country: DE (occurrence: DE)
  Receive Date: 20180521
  Receipt Date: 20180611
  Transmission Date: 20180711
  Serious: Yes (Hospitalization, Other)
  Sender: FDA-Public Use
  Company Number: DE-AUROBINDO-AUR-APL-2018-026849

PATIENT

DRUGS (13)
  1. CITALOPRAM [Suspect]
     Active Substance: CITALOPRAM HYDROBROMIDE
     Indication: PRODUCT USED FOR UNKNOWN INDICATION
     Dosage: 10 MG, QD (IN MORNING)
     Route: 065
  2. CITALOPRAM [Suspect]
     Active Substance: CITALOPRAM HYDROBROMIDE
     Dosage: 10 MG, QD (1-0-0-0)
     Route: 065
  3. METOPROLOL. [Suspect]
     Active Substance: METOPROLOL
     Indication: PRODUCT USED FOR UNKNOWN INDICATION
     Dosage: 1 DF IN MORNING AND 0.5 DF IN EVENING
     Route: 065
  4. RANITIDINE HYDROCHLORIDE. [Suspect]
     Active Substance: RANITIDINE HYDROCHLORIDE
     Dosage: 0.5 DF (0-0-0.5)
     Route: 065
  5. DOMPERIDONE [Suspect]
     Active Substance: DOMPERIDONE
     Dosage: 1.5 ML, TID (45 MG)
     Route: 065
  6. DOMPERIDONE [Suspect]
     Active Substance: DOMPERIDONE
     Indication: PRODUCT USED FOR UNKNOWN INDICATION
     Dosage: 10 MG, TID (1.5 ML)
     Route: 065
  7. DOMPERIDONE [Suspect]
     Active Substance: DOMPERIDONE
     Dosage: 1.5 ML, TID (45 MG)
     Route: 065
  8. ONDANSETRON [Suspect]
     Active Substance: ONDANSETRON
     Indication: PRODUCT USED FOR UNKNOWN INDICATION
     Dosage: 4 MG, BID (MORNING AND EVENING)
     Route: 065
  9. CITALOPRAM [Suspect]
     Active Substance: CITALOPRAM HYDROBROMIDE
     Dosage: 10 MG, QD (1-0-0-0)
     Route: 065
  10. BETHANECHOL [Suspect]
     Active Substance: BETHANECHOL
     Indication: PRODUCT USED FOR UNKNOWN INDICATION
     Dosage: 25 MG, TID (MORNING, AFTERNOON AND EVENING)
     Route: 065
  11. BETHANECHOL [Suspect]
     Active Substance: BETHANECHOL
     Dosage: 25 MG, TID (1-1-1-0)
     Route: 065
  12. METOPROLOL. [Suspect]
     Active Substance: METOPROLOL
     Dosage: 1 DF IN MORNING AND 0.5 DF IN EVENING ()
     Route: 065
  13. RANITIDINE HYDROCHLORIDE. [Suspect]
     Active Substance: RANITIDINE HYDROCHLORIDE
     Indication: PRODUCT USED FOR UNKNOWN INDICATION
     Dosage: 0.5 DF, QHS
     Route: 065

REACTIONS (3)
  - Medication error [Unknown]
  - Peritonitis [Unknown]
  - Off label use [Unknown]
